FAERS Safety Report 23761471 (Version 1)
Quarter: 2024Q2

REPORT INFORMATION
  Report Type: Spontaneous
  Country: US (occurrence: None)
  Receive Date: 20240418
  Receipt Date: 20240418
  Transmission Date: 20240715
  Serious: No
  Sender: FDA-Public Use
  Company Number: None

PATIENT
  Sex: 0

DRUGS (2)
  1. COLCHICINE [Suspect]
     Active Substance: COLCHICINE
  2. COLBENEMID [Suspect]
     Active Substance: COLCHICINE\PROBENECID

REACTIONS (2)
  - Pain [None]
  - Blood uric acid increased [None]

NARRATIVE: CASE EVENT DATE: 20240418
